FAERS Safety Report 12911555 (Version 3)
Quarter: 2017Q1

REPORT INFORMATION
  Report Type: Spontaneous
  Country: TW (occurrence: TW)
  Receive Date: 20161104
  Receipt Date: 20170127
  Transmission Date: 20170428
  Serious: Yes (Other)
  Sender: FDA-Public Use
  Company Number: TW-AMGEN-TWNSP2016154953

PATIENT
  Age: 59 Year
  Sex: Female

DRUGS (5)
  1. PLAQUENIL [Concomitant]
     Active Substance: HYDROXYCHLOROQUINE SULFATE
     Dosage: 1 DF, ALTERNATE DAY (200 MG)
     Route: 048
  2. PLAQUENIL [Concomitant]
     Active Substance: HYDROXYCHLOROQUINE SULFATE
     Dosage: 1 DF, ALTERNATE DAY (200 MG)
     Route: 048
  3. ENBREL [Suspect]
     Active Substance: ETANERCEPT
     Indication: RHEUMATOID ARTHRITIS
     Dosage: 25 MG, 2X/WEEK
     Route: 058
     Dates: start: 20100519
  4. ENBREL [Suspect]
     Active Substance: ETANERCEPT
     Dosage: 25MG. 2X/WEEK
     Route: 058
     Dates: start: 20170118
  5. ARAVA [Concomitant]
     Active Substance: LEFLUNOMIDE
     Dosage: 1 DF, ALTERNATE DAY (10 MG)
     Route: 048

REACTIONS (4)
  - Ascites [Unknown]
  - Pyrexia [Unknown]
  - Genital neoplasm malignant female [Unknown]
  - Tuberculosis [Recovering/Resolving]

NARRATIVE: CASE EVENT DATE: 20161109
